FAERS Safety Report 9019106 (Version 2)
Quarter: 2013Q3

REPORT INFORMATION
  Report Type: Report from Study
  Country: JP (occurrence: JP)
  Receive Date: 20130118
  Receipt Date: 20130801
  Transmission Date: 20140515
  Serious: Yes (Hospitalization, Other)
  Sender: FDA-Public Use
  Company Number: JP-JNJFOC-20130107100

PATIENT
  Age: 89 Year
  Sex: Female
  Weight: 52 kg

DRUGS (9)
  1. SIMPONI [Suspect]
     Indication: RHEUMATOID ARTHRITIS
     Route: 058
     Dates: start: 20120912, end: 20121005
  2. METHOTREXATE [Suspect]
     Indication: RHEUMATOID ARTHRITIS
     Route: 065
     Dates: start: 20120123, end: 20121023
  3. PREDNISOLONE [Suspect]
     Indication: RHEUMATOID ARTHRITIS
     Route: 048
     Dates: start: 20120125
  4. WARFARIN [Concomitant]
     Indication: VENOUS THROMBOSIS
     Route: 048
  5. LASIX [Concomitant]
     Indication: HYPERTENSION
     Route: 048
  6. ALDACTONE A [Concomitant]
     Indication: HYPERTENSION
     Route: 048
  7. ISCOTIN [Concomitant]
     Indication: PROPHYLAXIS
     Route: 048
  8. ACTONEL [Concomitant]
     Indication: OSTEOPOROSIS
     Route: 048
  9. FOLIAMIN [Concomitant]
     Indication: PROPHYLAXIS
     Route: 048

REACTIONS (4)
  - Pancytopenia [Recovering/Resolving]
  - Lobar pneumonia [Recovered/Resolved]
  - Herpes zoster [Recovered/Resolved]
  - Liver disorder [Recovered/Resolved]
